FAERS Safety Report 5898859-4 (Version None)
Quarter: 2008Q3

REPORT INFORMATION
  Report Type: 
  Country: None (occurrence: None)
  Receive Date: 20080925
  Receipt Date: 20080924
  Transmission Date: 20090109
  Serious: Yes (Hospitalization)
  Sender: FDA-Public Use
  Company Number: US-BRISTOL-MYERS SQUIBB COMPANY-14346563

PATIENT
  Age: 64 Year
  Sex: Male
  Weight: 74 kg

DRUGS (17)
  1. CYCLOPHOSPHAMIDE [Suspect]
     Indication: DIFFUSE LARGE B-CELL LYMPHOMA
     Dosage: INITIATED ON 11JUN08-750MG\M2 ON DAY 1.
     Route: 042
     Dates: start: 20080827, end: 20080827
  2. DOXORUBICIN HCL [Suspect]
     Indication: DIFFUSE LARGE B-CELL LYMPHOMA
     Dosage: INITIATED ON 11JUN08-50MG\M2 ON DAY 1.
     Route: 042
     Dates: start: 20080827, end: 20080827
  3. VINCRISTINE SULFATE [Suspect]
     Indication: DIFFUSE LARGE B-CELL LYMPHOMA
     Dosage: INITIATED ON 11JUN08-1.4MG\M2 ON DAY 1.
     Route: 042
     Dates: start: 20080827, end: 20080827
  4. ENZASTAURIN [Suspect]
     Indication: DIFFUSE LARGE B-CELL LYMPHOMA
     Dosage: DOSE:(1125MG)12JUN08;(500MG)13JUN08;2SEP08.
     Route: 048
     Dates: start: 20080902
  5. PREDNISONE [Suspect]
     Indication: DIFFUSE LARGE B-CELL LYMPHOMA
     Dosage: INITITATED ON 11-JUN-08, LAST DOSE ON 31AUG08
     Route: 048
     Dates: start: 20080831
  6. RITUXIMAB [Suspect]
     Indication: DIFFUSE LARGE B-CELL LYMPHOMA
     Dosage: INITIATED ON 11JUN08-375MG\M2 ON DAY 1.
     Route: 042
     Dates: start: 20080827, end: 20080827
  7. BUSPAR [Concomitant]
  8. LORTAB [Concomitant]
     Dates: start: 20080509
  9. ASPIRIN [Concomitant]
  10. FISH OIL [Concomitant]
  11. ZOFRAN [Concomitant]
     Dates: start: 20080611
  12. COMPAZINE [Concomitant]
     Dates: start: 20080611
  13. LEVAQUIN [Concomitant]
     Dates: start: 20080622
  14. MEGACE [Concomitant]
  15. SOLIFENACIN SUCCINATE [Concomitant]
  16. POTASSIUM CHLORIDE [Concomitant]
  17. CALCIUM PHOSPHATE [Concomitant]
     Dates: start: 20080618

REACTIONS (3)
  - NEUROPATHY PERIPHERAL [None]
  - PSEUDOMONAS INFECTION [None]
  - URINARY TRACT INFECTION [None]
